FAERS Safety Report 23226644 (Version 1)
Quarter: 2023Q4

REPORT INFORMATION
  Report Type: Report from Study
  Country: US (occurrence: US)
  Receive Date: 20231124
  Receipt Date: 20231124
  Transmission Date: 20240110
  Serious: Yes (Other)
  Sender: FDA-Public Use
  Company Number: US-002147023-NVSC2023US246721

PATIENT
  Sex: Male

DRUGS (1)
  1. TRIAMCINOLONE [Suspect]
     Active Substance: TRIAMCINOLONE
     Indication: Psoriasis
     Dosage: UNK
     Route: 065

REACTIONS (7)
  - Psoriatic arthropathy [Unknown]
  - Arthralgia [Unknown]
  - Psoriasis [Unknown]
  - Skin exfoliation [Unknown]
  - Nail discolouration [Unknown]
  - Pruritus [Unknown]
  - Drug ineffective [Unknown]
